FAERS Safety Report 9191681 (Version 3)
Quarter: 2014Q2

REPORT INFORMATION
  Report Type: Spontaneous
  Country: US (occurrence: US)
  Receive Date: 20130326
  Receipt Date: 20140415
  Transmission Date: 20141212
  Serious: No
  Sender: FDA-Public Use
  Company Number: US-009507513-1303USA011383

PATIENT
  Sex: Male
  Weight: 82.86 kg

DRUGS (3)
  1. PROPECIA [Suspect]
     Indication: ANDROGENETIC ALOPECIA
     Dosage: 1 MG, QD
     Route: 048
     Dates: start: 19990830, end: 20000701
  2. PROPECIA [Suspect]
     Indication: ALOPECIA
  3. ZOLOFT [Concomitant]
     Indication: MAJOR DEPRESSION
     Dosage: UNK
     Dates: end: 200201

REACTIONS (21)
  - Cognitive disorder [Not Recovered/Not Resolved]
  - Chronic hepatitis C [Not Recovered/Not Resolved]
  - Dermatitis contact [Unknown]
  - Conjunctivitis allergic [Unknown]
  - Tinea infection [Unknown]
  - Hyperlipidaemia [Unknown]
  - Blood pressure increased [Unknown]
  - Tendonitis [Unknown]
  - Palmar erythema [Unknown]
  - Cellulitis of male external genital organ [Unknown]
  - Androgen deficiency [Unknown]
  - Dysuria [Unknown]
  - Penile abscess [Unknown]
  - Disability [Not Recovered/Not Resolved]
  - Wrist surgery [Unknown]
  - Rash [Unknown]
  - Depression [Unknown]
  - Erectile dysfunction [Unknown]
  - Sexual dysfunction [Not Recovered/Not Resolved]
  - Drug ineffective [Unknown]
  - Drug ineffective [Unknown]
